FAERS Safety Report 7345494-7 (Version None)
Quarter: 2011Q1

REPORT INFORMATION
  Report Type: 
  Country: None (occurrence: None)
  Receive Date: 20110310
  Receipt Date: 20110228
  Transmission Date: 20110831
  Serious: Yes (Other)
  Sender: FDA-Public Use
  Company Number: CN-GENENTECH-314711

PATIENT
  Age: 55 Year
  Sex: Female
  Weight: 83 kg

DRUGS (3)
  1. RITUXIMAB [Suspect]
     Indication: DIFFUSE LARGE B-CELL LYMPHOMA
     Dosage: 600 MG, UNK
     Route: 041
     Dates: start: 20101028
  2. RITUXIMAB [Suspect]
     Dosage: 700 MG, UNK
     Route: 041
  3. RITUXIMAB [Suspect]
     Dosage: 600 MG, UNK
     Route: 041

REACTIONS (4)
  - LYMPHOMA [None]
  - DRUG INEFFECTIVE [None]
  - TUMOUR PAIN [None]
  - DISCOMFORT [None]
